FAERS Safety Report 15663465 (Version 1)
Quarter: 2018Q4

REPORT INFORMATION
  Report Type: Spontaneous
  Country: US (occurrence: US)
  Receive Date: 20181128
  Receipt Date: 20181128
  Transmission Date: 20190205
  Serious: No
  Sender: FDA-Public Use
  Company Number: US-SHIRE-US201846090

PATIENT
  Age: 60 Year
  Sex: Female

DRUGS (1)
  1. XIIDRA [Suspect]
     Active Substance: LIFITEGRAST
     Indication: PRODUCT USED FOR UNKNOWN INDICATION
     Dosage: UNK
     Route: 047
     Dates: start: 20180908, end: 20180920

REACTIONS (4)
  - Dry eye [Unknown]
  - Instillation site reaction [Unknown]
  - Eye discharge [Unknown]
  - Skin abrasion [Unknown]

NARRATIVE: CASE EVENT DATE: 20181118
